FAERS Safety Report 9402333 (Version 1)
Quarter: 2013Q3

REPORT INFORMATION
  Report Type: Spontaneous
  Country: US (occurrence: None)
  Receive Date: 20130712
  Receipt Date: 20130712
  Transmission Date: 20140515
  Serious: Yes (Disabling)
  Sender: FDA-Public Use
  Company Number: None

PATIENT
  Age: 57 Year
  Sex: Female
  Weight: 52.3 kg

DRUGS (3)
  1. AZITHROMYCIN [Suspect]
     Indication: SINUSITIS
     Dosage: 500 MG X1 THEN QD X 5 ORAL?250 MG X 4 DAYS
     Dates: start: 20110217, end: 20110221
  2. AMOUR THYROID [Concomitant]
  3. ESTRADIOL [Concomitant]

REACTIONS (3)
  - Abdominal distension [None]
  - Liver injury [None]
  - Liver function test abnormal [None]
